FAERS Safety Report 7366025-1 (Version None)
Quarter: 2011Q1

REPORT INFORMATION
  Report Type: 
  Country: None (occurrence: None)
  Receive Date: 20110317
  Receipt Date: 20110317
  Transmission Date: 20110831
  Serious: No
  Sender: FDA-Public Use
  Company Number: None

PATIENT
  Age: 55 Year
  Sex: Male
  Weight: 95.2554 kg

DRUGS (1)
  1. CRESTOR [Suspect]
     Dosage: 1 TABLET DAILY

REACTIONS (7)
  - THINKING ABNORMAL [None]
  - VISION BLURRED [None]
  - LOSS OF EMPLOYMENT [None]
  - SLEEP DISORDER [None]
  - DRUG DOSE OMISSION [None]
  - DISTURBANCE IN ATTENTION [None]
  - MENTAL IMPAIRMENT [None]
